FAERS Safety Report 9695282 (Version 1)
Quarter: 2013Q4

REPORT INFORMATION
  Report Type: Report from Study
  Country: GB (occurrence: GB)
  Receive Date: 20131119
  Receipt Date: 20131119
  Transmission Date: 20140711
  Serious: Yes (Hospitalization)
  Sender: FDA-Public Use
  Company Number: GB-ASTELLAS-2013EU010019

PATIENT
  Age: 16 Year
  Sex: Male

DRUGS (1)
  1. TACROLIMUS MR4 CAPSULES [Suspect]
     Dosage: UNK
     Route: 065

REACTIONS (1)
  - Ingrowing nail [Recovered/Resolved]
